FAERS Safety Report 6446092-X (Version None)
Quarter: 2009Q4

REPORT INFORMATION
  Report Type: 
  Country: None (occurrence: None)
  Receive Date: 20091118
  Receipt Date: 20091118
  Transmission Date: 20100525
  Serious: No
  Sender: FDA-Public Use
  Company Number: None

PATIENT

DRUGS (1)
  1. LUBRICANT EYE OINTMENT [Suspect]
     Dates: start: 20091109, end: 20091109

REACTIONS (6)
  - EYE IRRITATION [None]
  - EYE SWELLING [None]
  - HEADACHE [None]
  - OCULAR HYPERAEMIA [None]
  - VISION BLURRED [None]
  - VISUAL ACUITY REDUCED [None]
